FAERS Safety Report 8438742-3 (Version None)
Quarter: 2012Q2

REPORT INFORMATION
  Report Type: 
  Country: None (occurrence: None)
  Receive Date: 20120611
  Receipt Date: 20120611
  Transmission Date: 20120825
  Serious: No
  Sender: FDA-Public Use
  Company Number: None

PATIENT
  Age: 37 Year
  Sex: Female

DRUGS (2)
  1. MODAFINIL [Suspect]
     Indication: MULTIPLE SCLEROSIS
     Dates: start: 20120608
  2. MODAFINIL [Suspect]
     Indication: MULTIPLE SCLEROSIS
     Dates: start: 20120607

REACTIONS (2)
  - DIZZINESS [None]
  - FATIGUE [None]
